FAERS Safety Report 21706001 (Version 1)
Quarter: 2022Q4

REPORT INFORMATION
  Report Type: Spontaneous
  Country: US (occurrence: None)
  Receive Date: 20221208
  Receipt Date: 20221208
  Transmission Date: 20230113
  Serious: No
  Sender: FDA-Public Use
  Company Number: None

PATIENT
  Sex: Female

DRUGS (1)
  1. ENBREL [Suspect]
     Active Substance: ETANERCEPT
     Indication: Rheumatoid arthritis
     Dosage: OTHER FREQUENCY : 1 EVERY 7 DAYS;?OTHER ROUTE : INJECTION;?
     Route: 050
     Dates: start: 20220308

REACTIONS (4)
  - Arthralgia [None]
  - Joint swelling [None]
  - Pain [None]
  - Condition aggravated [None]
